FAERS Safety Report 6195729-1 (Version None)
Quarter: 2009Q2

REPORT INFORMATION
  Report Type: 
  Country: None (occurrence: None)
  Receive Date: 20090520
  Receipt Date: 20080104
  Transmission Date: 20091009
  Serious: Yes (Hospitalization, Other)
  Sender: FDA-Public Use
  Company Number: US-ASTRAZENECA-2007UW13912

PATIENT
  Age: 12160 Day
  Sex: Male
  Weight: 105.2 kg

DRUGS (32)
  1. SEROQUEL [Suspect]
     Indication: BIPOLAR DISORDER
     Dosage: 300-800MG
     Route: 048
     Dates: start: 20020130
  2. SEROQUEL [Suspect]
     Indication: DEPRESSION
     Dosage: 300-800MG
     Route: 048
     Dates: start: 20020130
  3. SEROQUEL [Suspect]
     Indication: SCHIZOPHRENIA
     Dosage: 300-800MG
     Route: 048
     Dates: start: 20020130
  4. SEROQUEL [Suspect]
     Indication: AGITATION
     Dosage: 300-800MG
     Route: 048
     Dates: start: 20020130
  5. SEROQUEL [Suspect]
     Indication: ANXIETY
     Dosage: 300-800MG
     Route: 048
     Dates: start: 20020130
  6. SEROQUEL [Suspect]
     Dosage: 300-500MG
     Route: 048
     Dates: start: 20020701, end: 20051201
  7. SEROQUEL [Suspect]
     Dosage: 300-500MG
     Route: 048
     Dates: start: 20020701, end: 20051201
  8. SEROQUEL [Suspect]
     Dosage: 300-500MG
     Route: 048
     Dates: start: 20020701, end: 20051201
  9. SEROQUEL [Suspect]
     Dosage: 300-500MG
     Route: 048
     Dates: start: 20020701, end: 20051201
  10. SEROQUEL [Suspect]
     Dosage: 300-500MG
     Route: 048
     Dates: start: 20020701, end: 20051201
  11. RISPERDAL [Concomitant]
  12. ASPIRIN [Concomitant]
     Route: 048
  13. LASIX [Concomitant]
     Route: 048
  14. GLUCOPHAGE [Concomitant]
     Dosage: 500-1000 MG BID
     Route: 048
  15. NAPROSYN [Concomitant]
     Route: 048
  16. PROTONIX [Concomitant]
     Dosage: 20-40 MG BEFORE BREAKFAST
     Route: 048
  17. ZOCOR [Concomitant]
     Dosage: 40-80 MG DAILY
     Route: 048
  18. TYLENOL [Concomitant]
     Indication: PAIN
     Dosage: 325-600MG Q 4 H PRN
     Route: 048
  19. TYLENOL [Concomitant]
     Indication: DISCOMFORT
     Dosage: 325-600MG Q 4 H PRN
     Route: 048
  20. CATAPRES [Concomitant]
     Indication: ALCOHOL WITHDRAWAL SYNDROME
     Dosage: 0.1 MG TID PRN
     Route: 048
  21. ATIVAN [Concomitant]
     Dosage: 0.4 MG Q 4 H PRN
     Route: 048
  22. LOPID [Concomitant]
     Route: 048
  23. PROLIXIN [Concomitant]
     Dosage: 5-12.5 MG HS
     Route: 048
  24. DEPAKOTE [Concomitant]
     Dosage: 1TAB IN MORNING AND 2 AT NIGHT
     Route: 048
  25. DESYREL [Concomitant]
     Indication: SLEEP DISORDER
     Dosage: 50-100MG QHS PRN,100MG  AT NIGHT
     Route: 048
  26. LIPITOR [Concomitant]
     Dosage: 10-40MG
     Route: 048
  27. ZYPREXA [Concomitant]
     Dosage: 5-20MG
     Route: 048
  28. TRICOR [Concomitant]
     Dosage: 54 MG,145 MG
     Route: 048
  29. NEXIUM [Concomitant]
     Route: 048
  30. ZETIA [Concomitant]
     Route: 048
  31. COLACE [Concomitant]
     Dosage: 100 MG DAILY
     Route: 048
  32. ATENOLOL [Concomitant]
     Route: 048

REACTIONS (12)
  - ARTHRITIS [None]
  - DYSLIPIDAEMIA [None]
  - GASTROOESOPHAGEAL REFLUX DISEASE [None]
  - HYPERCHOLESTEROLAEMIA [None]
  - HYPERTENSION [None]
  - HYPOGLYCAEMIA [None]
  - OBESITY [None]
  - SCHIZOAFFECTIVE DISORDER [None]
  - SKIN LACERATION [None]
  - SLEEP APNOEA SYNDROME [None]
  - TOOTH ABSCESS [None]
  - TYPE 2 DIABETES MELLITUS [None]
